FAERS Safety Report 22298372 (Version 1)
Quarter: 2023Q2

REPORT INFORMATION
  Report Type: Spontaneous
  Country: US (occurrence: US)
  Receive Date: 20230509
  Receipt Date: 20230509
  Transmission Date: 20230721
  Serious: No
  Sender: FDA-Public Use
  Company Number: US-APOTEX-2023AP006328

PATIENT
  Age: 77 Year
  Sex: Female
  Weight: 49.887 kg

DRUGS (1)
  1. IPRATROPIUM BROMIDE [Suspect]
     Active Substance: IPRATROPIUM BROMIDE\IPRATROPIUM BROMIDE ANHYDROUS
     Indication: Rhinitis
     Dosage: 2 SPRAYS IN EACH NOSTRIL TWICE DAILY
     Route: 045
     Dates: start: 202303

REACTIONS (3)
  - Product container issue [Unknown]
  - Product delivery mechanism issue [Unknown]
  - Drug ineffective [Unknown]

NARRATIVE: CASE EVENT DATE: 20230301
